FAERS Safety Report 7289983-2 (Version None)
Quarter: 2011Q1

REPORT INFORMATION
  Report Type: 
  Country: None (occurrence: None)
  Receive Date: 20110202
  Receipt Date: 20110112
  Transmission Date: 20110831
  Serious: Yes (Other)
  Sender: FDA-Public Use
  Company Number: JPI-P-013524

PATIENT
  Age: 11 Year
  Sex: Female
  Weight: 47.1 kg

DRUGS (2)
  1. FLUOXETINE [Concomitant]
  2. XYREM [Suspect]
     Indication: CATAPLEXY
     Dosage: SEE IMAGE
     Route: 048

REACTIONS (7)
  - ENURESIS [None]
  - NAUSEA [None]
  - BODY MASS INDEX DECREASED [None]
  - SNORING [None]
  - CONVULSION [None]
  - WEIGHT DECREASED [None]
  - VOMITING [None]
